FAERS Safety Report 21229783 (Version 2)
Quarter: 2022Q3

REPORT INFORMATION
  Report Type: Report from Study
  Country: US (occurrence: US)
  Receive Date: 20220818
  Receipt Date: 20220913
  Transmission Date: 20221026
  Serious: Yes (Hospitalization, Other)
  Sender: FDA-Public Use
  Company Number: US-TAKEDA-2022TUS019038

PATIENT
  Age: 46 Year
  Sex: Female
  Weight: 79 kg

DRUGS (44)
  1. HUMAN IMMUNOGLOBULIN G [Suspect]
     Active Substance: HUMAN IMMUNOGLOBULIN G
     Indication: Infectious disease carrier
     Dosage: 18 GRAM, Q2WEEKS
     Route: 058
     Dates: start: 20220308
  2. DIPHENHYDRAMINE [Concomitant]
     Active Substance: DIPHENHYDRAMINE
  3. JARDIANCE [Concomitant]
     Active Substance: EMPAGLIFLOZIN
  4. SULFAMETHOXAZOLE\TRIMETHOPRIM [Concomitant]
     Active Substance: SULFAMETHOXAZOLE\TRIMETHOPRIM
  5. TRULICITY [Concomitant]
     Active Substance: DULAGLUTIDE
  6. BACLOFEN [Concomitant]
     Active Substance: BACLOFEN
  7. FUROSEMIDE [Concomitant]
     Active Substance: FUROSEMIDE
  8. EPINEPHRINE [Concomitant]
     Active Substance: EPINEPHRINE
  9. NURTEC ODT [Concomitant]
     Active Substance: RIMEGEPANT SULFATE
  10. ONDANSETRON HCL [Concomitant]
     Active Substance: ONDANSETRON HYDROCHLORIDE
  11. POTASSIUM CHLORIDE [Concomitant]
     Active Substance: POTASSIUM CHLORIDE
  12. DULOXETINE HYDROCHLORIDE [Concomitant]
     Active Substance: DULOXETINE HYDROCHLORIDE
  13. VITAMIN D3 [Concomitant]
     Active Substance: CHOLECALCIFEROL
  14. ILARIS [Concomitant]
     Active Substance: CANAKINUMAB
  15. BOTOX [Concomitant]
     Active Substance: ONABOTULINUMTOXINA
  16. ACETAMINOPHEN [Concomitant]
     Active Substance: ACETAMINOPHEN
  17. LAMICTAL [Concomitant]
     Active Substance: LAMOTRIGINE
  18. CALCIUM [Concomitant]
     Active Substance: CALCIUM
  19. VITAMIN B [Concomitant]
     Active Substance: VITAMIN B
  20. CLONAZEPAM [Concomitant]
     Active Substance: CLONAZEPAM
  21. FLONASE ALLERGY RELIEF [Concomitant]
     Active Substance: FLUTICASONE PROPIONATE
  22. COLCHICINE [Concomitant]
     Active Substance: COLCHICINE
  23. NOVOLOG [Concomitant]
     Active Substance: INSULIN ASPART
  24. MECLIZINE HYDROCHLORIDE [Concomitant]
     Active Substance: MECLIZINE HYDROCHLORIDE
  25. NITROGLYCERIN [Concomitant]
     Active Substance: NITROGLYCERIN
  26. TOPIRAMATE [Concomitant]
     Active Substance: TOPIRAMATE
  27. FOLIC ACID [Concomitant]
     Active Substance: FOLIC ACID
  28. MAGNESIUM [Concomitant]
     Active Substance: MAGNESIUM
  29. CRESTOR [Concomitant]
     Active Substance: ROSUVASTATIN CALCIUM
  30. ALBUTEROL SULFATE [Concomitant]
     Active Substance: ALBUTEROL SULFATE
  31. FENOFIBRATE [Concomitant]
     Active Substance: FENOFIBRATE
  32. ISOSORBIDE MONONITRATE [Concomitant]
     Active Substance: ISOSORBIDE MONONITRATE
  33. METFORMIN HYDROCHLORIDE [Concomitant]
     Active Substance: METFORMIN HYDROCHLORIDE
  34. OMEPRAZOLE [Concomitant]
     Active Substance: OMEPRAZOLE
  35. PREGABALIN [Concomitant]
     Active Substance: PREGABALIN
  36. ASPIRIN [Concomitant]
     Active Substance: ASPIRIN
  37. CETIRIZINE HCL [Concomitant]
     Active Substance: CETIRIZINE HYDROCHLORIDE
  38. FISH OIL [Concomitant]
     Active Substance: FISH OIL
  39. Lmx [Concomitant]
  40. LANTUS [Concomitant]
     Active Substance: INSULIN GLARGINE
  41. UBRELVY [Concomitant]
     Active Substance: UBROGEPANT
  42. BUDESONIDE [Concomitant]
     Active Substance: BUDESONIDE
  43. FERROUS SULFATE [Concomitant]
     Active Substance: FERROUS SULFATE
  44. SULFAMETHOXAZOLE AND TRIMETHOPRIM [Concomitant]
     Active Substance: SULFAMETHOXAZOLE\TRIMETHOPRIM

REACTIONS (15)
  - Chronic kidney disease [Unknown]
  - Injection site mass [Recovered/Resolved]
  - Choking [Unknown]
  - Upper respiratory tract infection [Not Recovered/Not Resolved]
  - Abdominal distension [Unknown]
  - Pyrexia [Unknown]
  - Stomach mass [Unknown]
  - Abdominal discomfort [Unknown]
  - Nausea [Unknown]
  - Product preparation issue [Unknown]
  - Migraine [Unknown]
  - Blister [Unknown]
  - Respiratory tract infection [Unknown]
  - Infusion site reaction [Unknown]
  - Lower respiratory tract infection [Unknown]

NARRATIVE: CASE EVENT DATE: 20220310
